FAERS Safety Report 18399448 (Version 1)
Quarter: 2020Q4

REPORT INFORMATION
  Report Type: Spontaneous
  Country: US (occurrence: US)
  Receive Date: 20201019
  Receipt Date: 20201019
  Transmission Date: 20210114
  Serious: No
  Sender: FDA-Public Use
  Company Number: US-PFIZER INC-2020400920

PATIENT
  Sex: Female

DRUGS (2)
  1. ALPRAZOLAM. [Suspect]
     Active Substance: ALPRAZOLAM
     Indication: DEMENTIA ALZHEIMER^S TYPE
  2. ALPRAZOLAM. [Suspect]
     Active Substance: ALPRAZOLAM
     Indication: INSOMNIA
     Dosage: UNK

REACTIONS (7)
  - Stress [Unknown]
  - Amnesia [Unknown]
  - Feeling abnormal [Unknown]
  - Hypoacusis [Unknown]
  - Off label use [Unknown]
  - Product use in unapproved indication [Unknown]
  - Panic attack [Unknown]
